FAERS Safety Report 10165999 (Version 2)
Quarter: 2014Q2

REPORT INFORMATION
  Report Type: Spontaneous
  Country: CA (occurrence: CA)
  Receive Date: 20140511
  Receipt Date: 20140511
  Transmission Date: 20141212
  Serious: Yes (Disabling, Other)
  Sender: FDA-Public Use
  Company Number: CA-009507513-1404CAN009866

PATIENT
  Age: 62 Year
  Sex: Male
  Weight: 86 kg

DRUGS (7)
  1. PEGETRON [Suspect]
     Dosage: DAILY 1200 MG RIBAVIRIN
     Dates: start: 20140213
  2. PEGETRON [Suspect]
     Dosage: 150 MICROGRAM, QW
     Route: 058
     Dates: start: 20140213
  3. PEGETRON [Suspect]
     Dosage: 105 MICROGRAM, QW
     Route: 058
  4. PEGETRON [Suspect]
     Dosage: 96 MICROGRAM, UNK
     Route: 058
     Dates: start: 20140501
  5. VICTRELIS [Suspect]
     Dosage: 800 MG, Q8H
     Route: 048
     Dates: start: 20140313
  6. NADOLOL [Concomitant]
     Dosage: 20 MG, QD
     Route: 048
  7. SYNTHROID [Concomitant]
     Dosage: DAILY DOSE: 100MCG/25MCG, QD
     Route: 048

REACTIONS (3)
  - Retinal haemorrhage [Unknown]
  - Retinopathy [Unknown]
  - Vision blurred [Not Recovered/Not Resolved]
